FAERS Safety Report 19099253 (Version 2)
Quarter: 2022Q3

REPORT INFORMATION
  Report Type: Spontaneous
  Country: US (occurrence: US)
  Receive Date: 20210406
  Receipt Date: 20220803
  Transmission Date: 20221027
  Serious: Yes (Hospitalization, Congenital Anomaly, Other)
  Sender: FDA-Public Use
  Company Number: US-HQ SPECIALTY-US-2021INT000051

PATIENT
  Age: 76 Year
  Sex: Male

DRUGS (23)
  1. DEXMEDETOMIDINE HYDROCHLORIDE [Suspect]
     Active Substance: DEXMEDETOMIDINE HYDROCHLORIDE
     Indication: Sedative therapy
     Dosage: 1.4 UG/KG,1 HR
     Route: 065
  2. DEXMEDETOMIDINE HYDROCHLORIDE [Suspect]
     Active Substance: DEXMEDETOMIDINE HYDROCHLORIDE
     Indication: Analgesic therapy
  3. NEOSTIGMINE [Suspect]
     Active Substance: NEOSTIGMINE
     Indication: Intestinal pseudo-obstruction
     Dosage: ON DAY 9 (0.4 MG,1 HR)
     Route: 041
  4. NEOSTIGMINE [Suspect]
     Active Substance: NEOSTIGMINE
     Dosage: ON DAY 11 (0.4 MG,1 HR)
     Route: 041
  5. OXYCODONE [Suspect]
     Active Substance: OXYCODONE
     Indication: Extubation
     Dosage: 60 MG (10 MG,1 IN 4 HR)
     Route: 048
  6. CLONIDINE [Suspect]
     Active Substance: CLONIDINE
     Indication: Pain
     Dosage: 0.3 MG (0.1 MG,1 IN 8 HR)
     Route: 065
  7. CLONIDINE [Suspect]
     Active Substance: CLONIDINE
     Dosage: ON DAY 7 (0.2 MG,1 IN 8 HR)
     Route: 065
  8. CLONIDINE [Suspect]
     Active Substance: CLONIDINE
     Dosage: 0.3 MG (0.1 MG,1 IN 8 HR)
     Route: 065
  9. GABAPENTIN [Suspect]
     Active Substance: GABAPENTIN
     Indication: Pain
     Dosage: 300 MG (100 MG,1 IN 8 HR)
     Route: 065
  10. ACETAMINOPHEN [Suspect]
     Active Substance: ACETAMINOPHEN
     Indication: Pain
     Dosage: AS NEEDED
     Route: 065
  11. FENTANYL [Suspect]
     Active Substance: FENTANYL
     Indication: Analgesic therapy
     Route: 065
  12. FENTANYL [Suspect]
     Active Substance: FENTANYL
     Indication: Sedative therapy
  13. PROPOFOL [Concomitant]
     Active Substance: PROPOFOL
     Indication: Sedative therapy
     Dosage: UNK
     Route: 065
  14. PROPOFOL [Concomitant]
     Active Substance: PROPOFOL
     Dosage: (30 UG/KG,1 MIN)
     Route: 065
  15. DOCUSATE [Concomitant]
     Active Substance: DOCUSATE
     Indication: Constipation
     Dosage: UNK
     Route: 065
  16. DOCUSATE [Concomitant]
     Active Substance: DOCUSATE
     Dosage: BOWEL REGIMEN INTENSIFIED
     Route: 065
  17. SENNA ALEXANDRINA WHOLE [Concomitant]
     Active Substance: SENNA ALEXANDRINA WHOLE
     Indication: Constipation
     Dosage: UNK
     Route: 065
  18. SENNA ALEXANDRINA WHOLE [Concomitant]
     Active Substance: SENNA ALEXANDRINA WHOLE
     Dosage: BOWEL REGIMEN INTENSIFIED
     Route: 065
  19. POLYETHYLENE GLYCOL [Concomitant]
     Active Substance: POLYETHYLENE GLYCOL
     Indication: Constipation
     Dosage: UNK
     Route: 065
  20. POLYETHYLENE GLYCOL [Concomitant]
     Active Substance: POLYETHYLENE GLYCOL
     Dosage: BOWEL REGIMEN INTENSIFIED
     Route: 065
  21. BISACODYL [Concomitant]
     Active Substance: BISACODYL
     Indication: Constipation
     Dosage: UNK
     Route: 065
  22. BISACODYL [Concomitant]
     Active Substance: BISACODYL
     Dosage: BOWEL REGIMEN INTENSIFIED
     Route: 065
  23. METOCLOPRAMIDE [Concomitant]
     Active Substance: METOCLOPRAMIDE
     Indication: Intestinal pseudo-obstruction
     Dosage: 40 MG (10 MG,1 IN 6 HR)
     Route: 042

REACTIONS (5)
  - Drug interaction [Unknown]
  - Bradycardia [Recovered/Resolved]
  - Cardiac arrest [Recovered/Resolved]
  - Hypotension [Recovered/Resolved]
  - Intestinal pseudo-obstruction [Recovered/Resolved]
